FAERS Safety Report 12100989 (Version 1)
Quarter: 2016Q1

REPORT INFORMATION
  Report Type: Spontaneous
  Country: DK (occurrence: FR)
  Receive Date: 20160222
  Receipt Date: 20160222
  Transmission Date: 20160526
  Serious: Yes (Hospitalization)
  Sender: FDA-Public Use
  Company Number: FR-FRI-1000082674

PATIENT
  Age: 22 Year
  Sex: Female

DRUGS (10)
  1. ESCITALOPRAM [Suspect]
     Active Substance: ESCITALOPRAM OXALATE
     Indication: SUICIDAL IDEATION
     Route: 048
     Dates: start: 20151105, end: 20151228
  2. LOXAPAC [Suspect]
     Active Substance: LOXAPINE SUCCINATE
     Dosage: 100 MG
     Route: 048
     Dates: start: 20151222, end: 20151223
  3. RISPERDAL [Concomitant]
     Active Substance: RISPERIDONE
     Dosage: 6 MG
     Route: 048
     Dates: start: 20151114, end: 20151202
  4. LOXAPAC [Suspect]
     Active Substance: LOXAPINE SUCCINATE
     Indication: DELUSION
     Dosage: 50 MG
     Route: 048
     Dates: start: 20151218, end: 20151221
  5. RISPERDAL [Concomitant]
     Active Substance: RISPERIDONE
     Indication: DELIRIUM
     Dosage: 2 MG
     Route: 048
     Dates: start: 20151022, end: 20151113
  6. TEMESTA [Suspect]
     Active Substance: LORAZEPAM
     Indication: ANXIETY
     Dosage: 6 MG
     Route: 048
     Dates: start: 201510, end: 20151228
  7. SERESTA [Concomitant]
     Active Substance: OXAZEPAM
     Indication: PRODUCT USED FOR UNKNOWN INDICATION
     Route: 048
  8. OLANZAPINE. [Suspect]
     Active Substance: OLANZAPINE
     Indication: DELUSION
     Route: 048
     Dates: start: 20151202, end: 20151209
  9. OLANZAPINE. [Suspect]
     Active Substance: OLANZAPINE
     Dosage: 20 MG
     Route: 048
     Dates: start: 20151210, end: 20151222
  10. XEROQUEL [Concomitant]
     Active Substance: QUETIAPINE FUMARATE
     Indication: PRODUCT USED FOR UNKNOWN INDICATION
     Route: 048
     Dates: start: 20151223

REACTIONS (1)
  - Transaminases increased [Recovered/Resolved]

NARRATIVE: CASE EVENT DATE: 20151218
